FAERS Safety Report 9582013 (Version 5)
Quarter: 2013Q4

REPORT INFORMATION
  Report Type: Spontaneous
  Country: FR (occurrence: FR)
  Receive Date: 20131002
  Receipt Date: 20131112
  Transmission Date: 20140711
  Serious: Yes (Hospitalization, Other)
  Sender: FDA-Public Use
  Company Number: FR-BMSGILMSD-2013-0082756

PATIENT
  Age: 37 Year
  Sex: Female
  Weight: 55 kg

DRUGS (10)
  1. ATRIPLA [Suspect]
     Indication: HIV INFECTION
     Dosage: UNK
     Dates: start: 20110214, end: 20110513
  2. TRUVADA [Suspect]
     Indication: HIV INFECTION
     Dosage: UNK
     Dates: start: 20110514, end: 20110520
  3. TRUVADA [Suspect]
     Dosage: UNK
     Dates: start: 20090330, end: 20110213
  4. ATAZANAVIR [Suspect]
     Indication: HIV INFECTION
     Dosage: UNK
     Dates: start: 20110514, end: 20110520
  5. ATAZANAVIR [Suspect]
     Dosage: UNK
     Dates: start: 20090330, end: 20110214
  6. RITONAVIR [Suspect]
     Indication: HIV INFECTION
     Dosage: UNK
     Dates: start: 20110514, end: 20110520
  7. RITONAVIR [Suspect]
     Dosage: UNK
     Dates: start: 20090330, end: 20110214
  8. RELPAX [Concomitant]
     Indication: TENSION HEADACHE
     Dosage: 1 DF, QD
     Route: 048
     Dates: start: 20110415, end: 20110415
  9. PARACETAMOL [Concomitant]
     Indication: TENSION HEADACHE
     Dosage: UNK UNK, ONCE
     Route: 048
     Dates: start: 20110415, end: 20110415
  10. IVERMECTIN [Concomitant]
     Indication: FILARIASIS
     Dosage: 12 MG, UNK
     Route: 048
     Dates: start: 20110425, end: 20110425

REACTIONS (1)
  - Hepatitis fulminant [Recovered/Resolved]
